FAERS Safety Report 5171846-X (Version None)
Quarter: 2006Q4

REPORT INFORMATION
  Report Type: 
  Country: None (occurrence: None)
  Receive Date: 20061213
  Receipt Date: 20061120
  Transmission Date: 20070319
  Serious: Yes (Death)
  Sender: FDA-Public Use
  Company Number: JP-BRISTOL-MYERS SQUIBB COMPANY-13593868

PATIENT
  Age: 56 Year
  Sex: Male

DRUGS (7)
  1. ABILIFY [Suspect]
     Indication: SCHIZOPHRENIA
     Route: 048
     Dates: start: 20060704, end: 20061010
  2. CLONAZEPAM [Concomitant]
     Route: 048
     Dates: start: 20060704, end: 20061010
  3. BROMAZEPAM [Concomitant]
     Route: 048
     Dates: start: 20060704, end: 20060801
  4. BROMPERIDOL [Concomitant]
     Route: 048
     Dates: start: 20060704, end: 20060801
  5. SULPIRIDE [Concomitant]
     Route: 048
     Dates: start: 20060704, end: 20060718
  6. BIPERIDEN HYDROCHLORIDE TAB [Concomitant]
     Route: 048
     Dates: start: 20060709, end: 20060829
  7. DIAZEPAM [Concomitant]
     Route: 048
     Dates: start: 20060704, end: 20060926

REACTIONS (1)
  - CARDIO-RESPIRATORY ARREST [None]
